FAERS Safety Report 23456893 (Version 1)
Quarter: 2024Q1

REPORT INFORMATION
  Report Type: Spontaneous
  Country: MX (occurrence: MX)
  Receive Date: 20240130
  Receipt Date: 20240130
  Transmission Date: 20240410
  Serious: Yes (Other)
  Sender: FDA-Public Use
  Company Number: MX-002147023-PHHY2019MX135492

PATIENT
  Age: 84 Year
  Sex: Male
  Weight: 40 kg

DRUGS (4)
  1. EXELON PATCH [Suspect]
     Active Substance: RIVASTIGMINE
     Indication: Dementia Alzheimer^s type
     Dosage: 9.5 MG, QD PATCH 10 (CM2)
     Route: 062
  2. DILTIAZEM HYDROCHLORIDE [Concomitant]
     Active Substance: DILTIAZEM HYDROCHLORIDE
     Indication: Cardiac disorder
     Dosage: 1 DF, QD (9 YEARS AGO)
     Route: 048
  3. LEVODOPA [Concomitant]
     Active Substance: LEVODOPA
     Indication: Parkinson^s disease
     Dosage: 4 DF, QD (8 YEARS AGO)
     Route: 048
  4. PREGABALIN [Concomitant]
     Active Substance: PREGABALIN
     Indication: Parkinson^s disease
     Dosage: 3 DF, QD (1 YEAR AGO)
     Route: 048

REACTIONS (8)
  - Pulmonary congestion [Recovered/Resolved]
  - Cerebral palsy [Not Recovered/Not Resolved]
  - Hemiplegia [Not Recovered/Not Resolved]
  - Immobile [Unknown]
  - Parkinson^s disease [Unknown]
  - Feeling abnormal [Unknown]
  - Pharyngitis [Unknown]
  - Urinary tract infection [Recovered/Resolved]

NARRATIVE: CASE EVENT DATE: 20190512
